FAERS Safety Report 18500049 (Version 1)
Quarter: 2020Q4

REPORT INFORMATION
  Report Type: Spontaneous
  Country: FR (occurrence: FR)
  Receive Date: 20201113
  Receipt Date: 20201113
  Transmission Date: 20210114
  Serious: Yes (Hospitalization)
  Sender: FDA-Public Use
  Company Number: FR-JNJFOC-20201105664

PATIENT
  Age: 33 Year
  Sex: Male

DRUGS (4)
  1. TRAMADOL HYDROCHLORIDE. [Suspect]
     Active Substance: TRAMADOL HYDROCHLORIDE
     Indication: PRODUCT USED FOR UNKNOWN INDICATION
     Dosage: 300-400MG X 10 PAR JOUR
     Route: 042
     Dates: start: 2019, end: 20200929
  2. MORPHINE [Suspect]
     Active Substance: MORPHINE
     Indication: PRODUCT USED FOR UNKNOWN INDICATION
     Route: 042
     Dates: start: 2019, end: 20200929
  3. ACUPAN [Suspect]
     Active Substance: NEFOPAM HYDROCHLORIDE
     Indication: PRODUCT USED FOR UNKNOWN INDICATION
     Dosage: 5 A 10 AMPOULES X 10 PAR JOUR
     Route: 042
     Dates: start: 2019, end: 20200929
  4. CODEINE [Suspect]
     Active Substance: CODEINE
     Indication: PRODUCT USED FOR UNKNOWN INDICATION
     Dosage: 3G A 8G VOIRE 10G PAR JOUR
     Route: 048
     Dates: start: 2010, end: 20200928

REACTIONS (5)
  - Thrombophlebitis superficial [Recovering/Resolving]
  - Intentional overdose [Unknown]
  - Intentional product misuse [Recovering/Resolving]
  - Subcutaneous abscess [Recovering/Resolving]
  - Withdrawal syndrome [Recovered/Resolved]

NARRATIVE: CASE EVENT DATE: 2020
